FAERS Safety Report 15957295 (Version 1)
Quarter: 2019Q1

REPORT INFORMATION
  Report Type: Spontaneous
  Country: US (occurrence: US)
  Receive Date: 20190213
  Receipt Date: 20190213
  Transmission Date: 20190417
  Serious: Yes (Life-Threatening, Disabling)
  Sender: FDA-Public Use
  Company Number: None

PATIENT
  Age: 49 Year
  Sex: Female
  Weight: 65.25 kg

DRUGS (10)
  1. ZINC. [Concomitant]
     Active Substance: ZINC
  2. CALCIUM [Concomitant]
     Active Substance: CALCIUM
  3. WAL-PHED [Suspect]
     Active Substance: PSEUDOEPHEDRINE HYDROCHLORIDE
     Indication: NASOPHARYNGITIS
     Dosage: ?          QUANTITY:1 TABLET(S);?
     Route: 048
     Dates: start: 20190114, end: 20190127
  4. MILK THISTLE [Concomitant]
     Active Substance: DIETARY SUPPLEMENT\HERBALS\MILK THISTLE
  5. AFRIN ORIGINAL [Suspect]
     Active Substance: OXYMETAZOLINE HYDROCHLORIDE
     Indication: SINUSITIS
     Dosage: ?          QUANTITY:2 SPRAY(S);OTHER FREQUENCY:ONCE EVERY TWO DAY;?
     Route: 055
     Dates: start: 20190122, end: 20190126
  6. WAL-PHED [Suspect]
     Active Substance: PSEUDOEPHEDRINE HYDROCHLORIDE
     Indication: SINUS CONGESTION
     Dosage: ?          QUANTITY:1 TABLET(S);?
     Route: 048
     Dates: start: 20190114, end: 20190127
  7. MENTHOL. [Concomitant]
     Active Substance: MENTHOL
  8. ELDERBERRY [Concomitant]
     Active Substance: HERBALS
  9. PLANETARY HERBALS OLD INDIAN WILD CHERRY BARK SYRUP (HERBAL BLEND) [Concomitant]
  10. VITAMIN D [Concomitant]
     Active Substance: CHOLECALCIFEROL

REACTIONS (9)
  - Head injury [None]
  - Lip injury [None]
  - Disturbance in attention [None]
  - Hypotonia [None]
  - Daydreaming [None]
  - Memory impairment [None]
  - Product substitution issue [None]
  - Drug ineffective [None]
  - Loss of consciousness [None]

NARRATIVE: CASE EVENT DATE: 20190127
